FAERS Safety Report 21121381 (Version 3)
Quarter: 2025Q3

REPORT INFORMATION
  Report Type: Spontaneous
  Country: EU (occurrence: EU)
  Receive Date: 20220722
  Receipt Date: 20250710
  Transmission Date: 20251021
  Serious: Yes (Other)
  Sender: JAZZ
  Company Number: EU-GW PHARMA-2022-FR-024457

PATIENT

DRUGS (1)
  1. EPIDIOLEX [Suspect]
     Active Substance: CANNABIDIOL
     Indication: Severe myoclonic epilepsy of infancy
     Route: 048
     Dates: start: 202205

REACTIONS (1)
  - Superinfection bacterial [Not Recovered/Not Resolved]

NARRATIVE: CASE EVENT DATE: 20220528
